FAERS Safety Report 24408941 (Version 2)
Quarter: 2024Q4

REPORT INFORMATION
  Report Type: Spontaneous
  Country: US (occurrence: US)
  Receive Date: 20241007
  Receipt Date: 20241110
  Transmission Date: 20250115
  Serious: Yes (Hospitalization)
  Sender: SANOFI AVENTIS
  Company Number: US-SANOFI-02233972

PATIENT
  Age: 1 Year
  Sex: Male
  Weight: 10 kg

DRUGS (2)
  1. NEXVIAZYME [Suspect]
     Active Substance: AVALGLUCOSIDASE ALFA-NGPT
     Indication: Glycogen storage disease type II
     Dosage: 400 MG, QOW
     Route: 065
     Dates: start: 20240308, end: 2024
  2. NEXVIAZYME [Suspect]
     Active Substance: AVALGLUCOSIDASE ALFA-NGPT
     Dosage: 400 MG, QOW
     Route: 065
     Dates: start: 2024

REACTIONS (2)
  - Hospitalisation [Unknown]
  - Illness [Unknown]

NARRATIVE: CASE EVENT DATE: 20240101
